FAERS Safety Report 6231209-2 (Version None)
Quarter: 2009Q2

REPORT INFORMATION
  Report Type: 
  Country: None (occurrence: None)
  Receive Date: 20090616
  Receipt Date: 20090609
  Transmission Date: 20091009
  Serious: Yes (Hospitalization, Other)
  Sender: FDA-Public Use
  Company Number: US-BAYER-200921043NA

PATIENT
  Age: 57 Year
  Sex: Female
  Weight: 79 kg

DRUGS (3)
  1. SORAFENIB [Suspect]
     Indication: PANCREATIC CARCINOMA METASTATIC
     Dosage: TOTAL DAILY DOSE: 200 MG  UNIT DOSE: 200 MG
     Route: 048
     Dates: start: 20090304, end: 20090514
  2. OXALIPLATIN [Suspect]
     Indication: PANCREATIC CARCINOMA METASTATIC
     Dosage: TOTAL DAILY DOSE: 120 MG  UNIT DOSE: 85 MG/M2
     Route: 042
     Dates: start: 20090304, end: 20090504
  3. CAPECITABINE [Suspect]
     Indication: PANCREATIC CARCINOMA METASTATIC
     Dosage: EVERY 8 HOURS X6 DOSES AFTER EACH OXALIPLATIN DOSE
     Route: 048
     Dates: end: 20090506

REACTIONS (2)
  - DIARRHOEA [None]
  - PULMONARY EMBOLISM [None]
